FAERS Safety Report 20940157 (Version 1)
Quarter: 2022Q2

REPORT INFORMATION
  Report Type: Spontaneous
  Country: US (occurrence: None)
  Receive Date: 20220609
  Receipt Date: 20220609
  Transmission Date: 20220721
  Serious: Yes (Disabling)
  Sender: FDA-Public Use
  Company Number: None

PATIENT
  Age: 86 Year
  Sex: Female

DRUGS (7)
  1. OMEPRAZOLE [Suspect]
     Active Substance: OMEPRAZOLE
     Indication: Gastric disorder
     Dosage: OTHER QUANTITY : 1 CAPSULE(S);?FREQUENCY : DAILY;?
     Route: 048
  2. HYDROCHLOROTHIAZIDE [Concomitant]
     Active Substance: HYDROCHLOROTHIAZIDE
  3. BENZONATATE [Concomitant]
     Active Substance: BENZONATATE
  4. NIFEDIPINE [Concomitant]
     Active Substance: NIFEDIPINE
  5. ATORVASTATIN [Concomitant]
     Active Substance: ATORVASTATIN
  6. VITAMIN B12 [Concomitant]
     Active Substance: CYANOCOBALAMIN
  7. Aspirin 81mg [Concomitant]

REACTIONS (5)
  - Fatigue [None]
  - Abdominal pain upper [None]
  - Headache [None]
  - Weight increased [None]
  - Chills [None]

NARRATIVE: CASE EVENT DATE: 20210901
